FAERS Safety Report 8640271 (Version 2)
Quarter: 2013Q2

REPORT INFORMATION
  Report Type: Report from Study
  Country: US (occurrence: US)
  Receive Date: 20120628
  Receipt Date: 20130627
  Transmission Date: 20140414
  Serious: Yes (Other)
  Sender: FDA-Public Use
  Company Number: US-MYLANLABS-2012S1004044

PATIENT
  Age: 18 Year
  Sex: Male

DRUGS (1)
  1. CLOZAPINE TABLETS [Suspect]
     Dosage: 100MG QAM, 200MG QPM
     Route: 048
     Dates: end: 20120608

REACTIONS (1)
  - Granulocytopenia [Not Recovered/Not Resolved]
